FAERS Safety Report 6670446-X (Version None)
Quarter: 2010Q2

REPORT INFORMATION
  Report Type: 
  Country: None (occurrence: None)
  Receive Date: 20100407
  Receipt Date: 20100329
  Transmission Date: 20101027
  Serious: No
  Sender: FDA-Public Use
  Company Number: US-BIOGENIDEC-2009BI035759

PATIENT
  Age: 30 Year
  Sex: Female

DRUGS (1)
  1. TYSABRI [Suspect]
     Indication: MULTIPLE SCLEROSIS
     Route: 042
     Dates: start: 20090319

REACTIONS (7)
  - ANAEMIA [None]
  - FALL [None]
  - HEADACHE [None]
  - MENOMETRORRHAGIA [None]
  - PAIN [None]
  - PAIN IN EXTREMITY [None]
  - PREMATURE MENOPAUSE [None]
